FAERS Safety Report 20009158 (Version 7)
Quarter: 2024Q3

REPORT INFORMATION
  Report Type: Report from Study
  Country: US (occurrence: US)
  Receive Date: 20211029
  Receipt Date: 20240925
  Transmission Date: 20241017
  Serious: No
  Sender: GLAXOSMITHKLINE
  Company Number: US-GLAXOSMITHKLINE-US2021AMR220096

PATIENT
  Sex: Female

DRUGS (4)
  1. NIRAPARIB [Suspect]
     Active Substance: NIRAPARIB
     Indication: Ovarian cancer
     Dosage: 200 MG, QD
     Dates: start: 20200101
  2. NIRAPARIB [Suspect]
     Active Substance: NIRAPARIB
     Dosage: 100 MG, QD
  3. VALSARTAN [Concomitant]
     Active Substance: VALSARTAN
     Indication: Hypertension
     Dosage: UNK
  4. NIFEDIPINE [Concomitant]
     Active Substance: NIFEDIPINE
     Indication: Hypertension
     Dosage: UNK

REACTIONS (5)
  - Feeling abnormal [Recovering/Resolving]
  - Abdominal discomfort [Recovering/Resolving]
  - Vertigo [Recovering/Resolving]
  - Product dose omission issue [Recovered/Resolved]
  - Product dose omission in error [Recovered/Resolved]
